FAERS Safety Report 6725849-1 (Version None)
Quarter: 2010Q2

REPORT INFORMATION
  Report Type: 
  Country: None (occurrence: None)
  Receive Date: 20100514
  Receipt Date: 20100503
  Transmission Date: 20101027
  Serious: Yes (Hospitalization)
  Sender: FDA-Public Use
  Company Number: PHHY2010FR29080

PATIENT
  Sex: Female

DRUGS (6)
  1. ZOMETA [Suspect]
     Dosage: 4 MG, QMO
     Dates: start: 20070301, end: 20100201
  2. FEMARA [Suspect]
     Dosage: UNK
     Dates: end: 20080701
  3. PACLITAXEL [Suspect]
     Dosage: UNK
     Dates: end: 20090101
  4. BEVACIZUMAB [Suspect]
     Dosage: UNK
     Dates: end: 20081001
  5. CYCLOPHOSPHAMIDE [Suspect]
     Dosage: UNK
     Dates: start: 20090401, end: 20091101
  6. DOXORUBICIN HCL [Suspect]
     Dosage: UNK
     Dates: start: 20090401, end: 20091101

REACTIONS (2)
  - OSTEOMYELITIS [None]
  - OSTEONECROSIS OF JAW [None]
